FAERS Safety Report 6807044-0 (Version None)
Quarter: 2010Q2

REPORT INFORMATION
  Report Type: 
  Country: None (occurrence: None)
  Receive Date: 20100629
  Receipt Date: 20080716
  Transmission Date: 20101027
  Serious: Yes (Other)
  Sender: FDA-Public Use
  Company Number: US-PFIZER INC-2008059427

PATIENT
  Sex: Female

DRUGS (2)
  1. XANAX [Suspect]
  2. BENADRYL [Suspect]
     Route: 048

REACTIONS (1)
  - SUICIDAL IDEATION [None]
